FAERS Safety Report 6542324-8 (Version None)
Quarter: 2010Q1

REPORT INFORMATION
  Report Type: 
  Country: None (occurrence: None)
  Receive Date: 20100119
  Receipt Date: 20100111
  Transmission Date: 20100710
  Serious: Yes (Other)
  Sender: FDA-Public Use
  Company Number: US-PFIZER INC-2010004373

PATIENT
  Sex: Male
  Weight: 104.31 kg

DRUGS (1)
  1. VIAGRA [Suspect]
     Indication: ERECTILE DYSFUNCTION
     Dosage: 100 MG, UNKNOWN
     Route: 048

REACTIONS (4)
  - DIZZINESS [None]
  - FLUSHING [None]
  - HEART RATE DECREASED [None]
  - LOSS OF CONSCIOUSNESS [None]
